FAERS Safety Report 5302894-4 (Version None)
Quarter: 2007Q2

REPORT INFORMATION
  Report Type: 
  Country: None (occurrence: None)
  Receive Date: 20070419
  Receipt Date: 20070419
  Transmission Date: 20071010
  Serious: Yes (Death)
  Sender: FDA-Public Use
  Company Number: None

PATIENT
  Age: 5 Month
  Sex: Female
  Weight: 5.22 kg

DRUGS (6)
  1. INH [Suspect]
     Indication: TUBERCULOSIS
     Dosage: 50 MG DAILY PO
     Route: 048
     Dates: start: 20070126, end: 20070302
  2. TRIMETHOPRIM + SULFAMETHOXAZOLE [Suspect]
     Indication: ANTIFUNGAL PROPHYLAXIS
     Dosage: 3 ML DAILY PO
     Route: 048
     Dates: start: 20070126, end: 20070302
  3. PLACEBO [Suspect]
     Indication: TUBERCULOSIS
     Dosage: 50 MG DAILY PO
     Route: 048
     Dates: start: 20070126, end: 20070302
  4. LAMIVUDINE [Concomitant]
  5. LOPINAVIR/RITONAVIR [Concomitant]
  6. STAVUDINE [Concomitant]

REACTIONS (6)
  - GASTROENTERITIS [None]
  - GENERAL PHYSICAL HEALTH DETERIORATION [None]
  - HEPATOSPLENOMEGALY [None]
  - ORAL CANDIDIASIS [None]
  - PYREXIA [None]
  - TREATMENT NONCOMPLIANCE [None]
